FAERS Safety Report 18116007 (Version 1)
Quarter: 2020Q3

REPORT INFORMATION
  Report Type: Spontaneous
  Country: US (occurrence: US)
  Receive Date: 20200805
  Receipt Date: 20200805
  Transmission Date: 20201103
  Serious: No
  Sender: FDA-Public Use
  Company Number: US-AMAG PHARMACEUTICALS, INC.-AMAG202002512

PATIENT
  Age: 53 Year
  Sex: Female
  Weight: 78.54 kg

DRUGS (2)
  1. VYLEESI [Suspect]
     Active Substance: BREMELANOTIDE ACETATE
     Indication: LIBIDO DECREASED
     Route: 058
     Dates: start: 20200718
  2. VYLEESI [Suspect]
     Active Substance: BREMELANOTIDE ACETATE
     Dosage: NDC#: 64011?701?01
     Route: 058

REACTIONS (2)
  - Injection site extravasation [Recovered/Resolved]
  - Underdose [Recovered/Resolved]

NARRATIVE: CASE EVENT DATE: 20200718
